FAERS Safety Report 14048152 (Version 3)
Quarter: 2018Q1

REPORT INFORMATION
  Report Type: Report from Study
  Country: US (occurrence: US)
  Receive Date: 20171005
  Receipt Date: 20180130
  Transmission Date: 20180508
  Serious: Yes (Death, Hospitalization, Other)
  Sender: FDA-Public Use
  Company Number: US-GILEAD-2017-0296326

PATIENT

DRUGS (15)
  1. TORSEMIDE. [Concomitant]
     Active Substance: TORSEMIDE
  2. HUMALOG [Concomitant]
     Active Substance: INSULIN LISPRO
  3. PANTOPRAZOLE [Concomitant]
     Active Substance: PANTOPRAZOLE
  4. PRIMACOR                           /00995601/ [Concomitant]
  5. BUMETANIDE. [Concomitant]
     Active Substance: BUMETANIDE
  6. CIPRO [Concomitant]
     Active Substance: CIPROFLOXACIN HYDROCHLORIDE
  7. ISORDIL [Concomitant]
     Active Substance: ISOSORBIDE DINITRATE
  8. LEXAPRO [Concomitant]
     Active Substance: ESCITALOPRAM OXALATE
  9. ALFUZOSIN [Concomitant]
     Active Substance: ALFUZOSIN
  10. COUMADIN [Concomitant]
     Active Substance: WARFARIN SODIUM
  11. PLAVIX [Concomitant]
     Active Substance: CLOPIDOGREL BISULFATE
  12. MAGNESIUM [Concomitant]
     Active Substance: MAGNESIUM
  13. SENNA                              /00142201/ [Concomitant]
     Active Substance: SENNA LEAF
  14. COREG [Concomitant]
     Active Substance: CARVEDILOL
  15. RANOLAZINE. [Suspect]
     Active Substance: RANOLAZINE
     Indication: VENTRICULAR ARRHYTHMIA
     Route: 065

REACTIONS (6)
  - Cardiac failure [Fatal]
  - Chest pain [Unknown]
  - Dizziness [Unknown]
  - Dyspnoea [Unknown]
  - Angina pectoris [Unknown]
  - Cardiac failure [Unknown]
